FAERS Safety Report 23283978 (Version 1)
Quarter: 2023Q4

REPORT INFORMATION
  Report Type: Spontaneous
  Country: US (occurrence: None)
  Receive Date: 20231211
  Receipt Date: 20231211
  Transmission Date: 20240110
  Serious: Yes (Hospitalization)
  Sender: FDA-Public Use
  Company Number: None

PATIENT
  Sex: Female

DRUGS (2)
  1. PIRFENIDONE [Suspect]
     Active Substance: PIRFENIDONE
     Indication: Interstitial lung disease
     Dosage: 801MG 3 TIMES A DAY BY MOUTH
     Route: 048
     Dates: start: 202310
  2. ESBRIET [Concomitant]
     Active Substance: PIRFENIDONE

REACTIONS (5)
  - Dyspepsia [None]
  - Flatulence [None]
  - Diarrhoea [None]
  - Abdominal pain upper [None]
  - Condition aggravated [None]
